FAERS Safety Report 5619433-0 (Version None)
Quarter: 2008Q1

REPORT INFORMATION
  Report Type: 
  Country: None (occurrence: None)
  Receive Date: 20080109
  Receipt Date: 20070410
  Transmission Date: 20080703
  Serious: Yes (Other)
  Sender: FDA-Public Use
  Company Number: WAES 0704USA01451

PATIENT
  Sex: Female

DRUGS (1)
  1. ZETIA [Suspect]
     Dosage: PO
     Route: 048

REACTIONS (1)
  - PANCREATITIS [None]
